FAERS Safety Report 9912896 (Version 1)
Quarter: 2014Q1

REPORT INFORMATION
  Report Type: Spontaneous
  Country: US (occurrence: None)
  Receive Date: 20140218
  Receipt Date: 20140218
  Transmission Date: 20141002
  Serious: Yes (Other)
  Sender: FDA-Public Use
  Company Number: None

PATIENT
  Age: 39 Year
  Sex: Male
  Weight: 80 kg

DRUGS (1)
  1. INDIUM 111 OXYQUINOLONE [Suspect]
     Dosage: ONCE DAILY INO A VEIN
     Route: 042

REACTIONS (1)
  - Abdominal pain upper [None]
